FAERS Safety Report 4803373-0 (Version None)
Quarter: 2005Q4

REPORT INFORMATION
  Report Type: 
  Country: None (occurrence: None)
  Receive Date: 20051013
  Receipt Date: 20050927
  Transmission Date: 20060501
  Serious: Yes (Hospitalization)
  Sender: FDA-Public Use
  Company Number: USA0509108934

PATIENT
  Age: 67 Year
  Sex: Female

DRUGS (12)
  1. CYMBALTA (DUOXETINE HYDROCHLORIDE) [Suspect]
     Dosage: 60 MG
     Dates: end: 20050915
  2. FORTEO [Suspect]
  3. ATIVAN [Concomitant]
  4. ALBUTEROL [Concomitant]
  5. ACETAMINOPHEN W/ PROPOXYPHENE HCL [Concomitant]
  6. NEXIUM [Concomitant]
  7. POTASSIUM [Concomitant]
  8. SKELAXIN [Concomitant]
  9. SPIRIVA [Concomitant]
  10. LEVAQUIN [Concomitant]
  11. ATROVENT [Concomitant]
  12. BLOOD PRESSURE MEDICATION [Concomitant]

REACTIONS (4)
  - ELECTROLYTE IMBALANCE [None]
  - HALLUCINATION [None]
  - HYPOKALAEMIA [None]
  - URINARY TRACT INFECTION [None]
